FAERS Safety Report 9596260 (Version 2)
Quarter: 2013Q4

REPORT INFORMATION
  Report Type: Spontaneous
  Country: US (occurrence: US)
  Receive Date: 20131004
  Receipt Date: 20131023
  Transmission Date: 20140711
  Serious: Yes (Death)
  Sender: FDA-Public Use
  Company Number: US-PFIZER INC-2013282068

PATIENT
  Age: 86 Year
  Sex: Male

DRUGS (11)
  1. SUTENT [Suspect]
     Indication: RENAL CELL CARCINOMA
     Dosage: 50 MG, CYCLIC (4 WEEKS ON 2 WEEKS OFF)
     Dates: start: 20130528
  2. SUTENT [Suspect]
     Dosage: 37.5 MG, DAILY
     Route: 048
     Dates: start: 20130712
  3. HYDROCHLOROTHIAZIDE [Concomitant]
     Dosage: UNK
  4. ASPIRIN [Concomitant]
     Dosage: 81 MG, UNK
  5. LASIX [Concomitant]
     Dosage: 40 MG, UNK
  6. LOPRESSOR [Concomitant]
     Dosage: 50 MG, UNK
  7. SIMVASTATIN [Concomitant]
     Dosage: 20 MG, UNK
  8. METFORMIN [Concomitant]
     Dosage: 500 MG, UNK
  9. WARFARIN [Concomitant]
     Dosage: 2 MG, UNK
  10. HYDROCODONE W/ACETAMINOPHEN [Concomitant]
     Dosage: UNK
  11. TESSALON [Concomitant]
     Dosage: 100 MG, UNK

REACTIONS (1)
  - Death [Fatal]
